FAERS Safety Report 11887755 (Version 1)
Quarter: 2016Q1

REPORT INFORMATION
  Report Type: Spontaneous
  Country: AU (occurrence: AU)
  Receive Date: 20160105
  Receipt Date: 20160105
  Transmission Date: 20160526
  Serious: Yes (Other)
  Sender: FDA-Public Use
  Company Number: AU-AUROBINDO-AUR-APL-2015-12111

PATIENT
  Age: 91 Year
  Sex: Female
  Weight: 52 kg

DRUGS (3)
  1. CIPROFLOXACIN 500 [Suspect]
     Active Substance: CIPROFLOXACIN
     Indication: MYCOBACTERIUM ULCERANS INFECTION
     Dosage: 500 MG, TWO TIMES A DAY
     Route: 065
  2. RIFAMPICIN [Concomitant]
     Active Substance: RIFAMPIN
     Indication: MYCOBACTERIUM ULCERANS INFECTION
     Dosage: 450 MG, DAILY
     Route: 065
  3. PREDNISOLONE. [Concomitant]
     Active Substance: PREDNISOLONE
     Indication: MYCOBACTERIUM ULCERANS INFECTION
     Dosage: 30 MG, DAILY
     Route: 065

REACTIONS (3)
  - Rash [Unknown]
  - Nausea [Unknown]
  - Drug level above therapeutic [Unknown]
